FAERS Safety Report 4771025-1 (Version None)
Quarter: 2005Q3

REPORT INFORMATION
  Report Type: 
  Country: None (occurrence: None)
  Receive Date: 20050914
  Receipt Date: 20050830
  Transmission Date: 20060218
  Serious: Yes (Death)
  Sender: FDA-Public Use
  Company Number: 8010987

PATIENT
  Sex: Female

DRUGS (4)
  1. KEPPRA [Suspect]
     Indication: EPILEPSY
     Dosage: 1 G 2/D PO
     Route: 048
  2. TOPIRAMATE [Concomitant]
  3. TEGRETOL [Concomitant]
  4. CLOBAZAM [Concomitant]

REACTIONS (5)
  - COMPLETED SUICIDE [None]
  - FLUSHING [None]
  - FORMICATION [None]
  - HYPOAESTHESIA [None]
  - PSYCHOTIC DISORDER [None]
